FAERS Safety Report 10944596 (Version 1)
Quarter: 2015Q1

REPORT INFORMATION
  Report Type: Spontaneous
  Country: US (occurrence: None)
  Receive Date: 20150320
  Receipt Date: 20150320
  Transmission Date: 20150721
  Serious: No
  Sender: FDA-Public Use
  Company Number: None

PATIENT
  Age: 38 Year
  Sex: Female

DRUGS (16)
  1. TECFIDERA [Suspect]
     Active Substance: DIMETHYL FUMARATE
     Indication: MULTIPLE SCLEROSIS
     Route: 048
     Dates: start: 201405, end: 201410
  2. SERTRALINE [Concomitant]
     Active Substance: SERTRALINE HYDROCHLORIDE
  3. FLONASE [Concomitant]
     Active Substance: FLUTICASONE PROPIONATE
  4. OMEGA 3 FISH OIL [Concomitant]
     Active Substance: FISH OIL\OMEGA-3 FATTY ACIDS
  5. TECFIDERA [Concomitant]
     Active Substance: DIMETHYL FUMARATE
  6. FLEXERIL [Concomitant]
     Active Substance: CYCLOBENZAPRINE HYDROCHLORIDE
  7. IBUPROFEN. [Concomitant]
     Active Substance: IBUPROFEN
  8. BENZONATATE. [Concomitant]
     Active Substance: BENZONATATE
  9. MODAFINIL. [Concomitant]
     Active Substance: MODAFINIL
  10. COPAXONE [Concomitant]
     Active Substance: GLATIRAMER ACETATE
  11. NARATRIPTAN [Concomitant]
     Active Substance: NARATRIPTAN HYDROCHLORIDE
  12. MAGNESIUM OXIDE. [Concomitant]
     Active Substance: MAGNESIUM OXIDE
  13. LAMIVUDINE. [Concomitant]
     Active Substance: LAMIVUDINE
  14. NAPROXEN. [Concomitant]
     Active Substance: NAPROXEN
  15. PREDNISONE. [Concomitant]
     Active Substance: PREDNISONE
  16. MELATONIN [Concomitant]
     Active Substance: MELATONIN

REACTIONS (1)
  - Pruritus [None]

NARRATIVE: CASE EVENT DATE: 20141022
